FAERS Safety Report 24190239 (Version 3)
Quarter: 2024Q3

REPORT INFORMATION
  Report Type: Report from Study
  Country: CO (occurrence: CO)
  Receive Date: 20240808
  Receipt Date: 20240923
  Transmission Date: 20241017
  Serious: Yes (Other)
  Sender: ABBVIE
  Company Number: CO-ABBVIE-5870188

PATIENT
  Sex: Male
  Weight: 65 kg

DRUGS (4)
  1. VENCLEXTA [Suspect]
     Active Substance: VENETOCLAX
     Indication: Acute myeloid leukaemia
     Dosage: FORM STRENGTH 100 MILLIGRAM?FREQUENCY TEXT: 21 DAYS CYCLE
     Route: 048
     Dates: start: 20240221, end: 20240720
  2. VENCLEXTA [Suspect]
     Active Substance: VENETOCLAX
     Indication: Acute myeloid leukaemia
     Dosage: FORM STRENGTH: 100 MILLIGRAM
     Route: 048
     Dates: start: 20240906
  3. BUSCAPINA [Concomitant]
     Indication: Pain
     Dosage: 2 TABLET
     Route: 048
     Dates: start: 20240821
  4. SCOPOLAMINE [Concomitant]
     Active Substance: SCOPOLAMINE
     Indication: Pain
     Dosage: 2 TABLET
     Route: 048
     Dates: start: 20240821

REACTIONS (9)
  - Cholelithiasis [Not Recovered/Not Resolved]
  - Hepatitis [Not Recovered/Not Resolved]
  - Blood bilirubin increased [Not Recovered/Not Resolved]
  - Primary biliary cholangitis [Unknown]
  - Chest pain [Unknown]
  - Investigation abnormal [Unknown]
  - Hepatotoxicity [Not Recovered/Not Resolved]
  - Transaminases increased [Not Recovered/Not Resolved]
  - Flatulence [Unknown]

NARRATIVE: CASE EVENT DATE: 20240101
